FAERS Safety Report 16459930 (Version 1)
Quarter: 2019Q2

REPORT INFORMATION
  Report Type: Spontaneous
  Country: US (occurrence: US)
  Receive Date: 20190620
  Receipt Date: 20190620
  Transmission Date: 20190711
  Serious: Yes (Other)
  Sender: FDA-Public Use
  Company Number: US-BAXTER-2019BAX012328

PATIENT
  Age: 46 Year
  Sex: Male

DRUGS (1)
  1. VANCOMYCIN INJECTION, USP [Suspect]
     Active Substance: VANCOMYCIN
     Indication: ANTIBIOTIC THERAPY
     Route: 065

REACTIONS (1)
  - Linear IgA disease [Recovered/Resolved]
